FAERS Safety Report 5031612-2 (Version None)
Quarter: 2006Q2

REPORT INFORMATION
  Report Type: 
  Country: None (occurrence: None)
  Receive Date: 20060505
  Receipt Date: 20050512
  Transmission Date: 20061013
  Serious: Yes (Other)
  Sender: FDA-Public Use
  Company Number: PHEH2005US05521

PATIENT
  Sex: Female
  Weight: 72.6 kg

DRUGS (1)
  1. DIOVAN HCT [Suspect]
     Dosage: 160/12.5 MG ORAL
     Route: 048
     Dates: start: 20040501

REACTIONS (1)
  - HYPONATRAEMIA [None]
